FAERS Safety Report 23926652 (Version 1)
Quarter: 2024Q2

REPORT INFORMATION
  Report Type: Report from Study
  Country: EG (occurrence: EG)
  Receive Date: 20240531
  Receipt Date: 20240531
  Transmission Date: 20240716
  Serious: Yes (Death, Hospitalization)
  Sender: FDA-Public Use
  Company Number: EG-SERVIER-S24006284

PATIENT
  Age: 48 Year
  Sex: Male
  Weight: 45 kg

DRUGS (1)
  1. ONIVYDE [Suspect]
     Active Substance: IRINOTECAN HYDROCHLORIDE
     Indication: Pancreatic carcinoma metastatic
     Dosage: UNK, 2 VIALS
     Route: 065
     Dates: start: 20240131

REACTIONS (4)
  - Death [Fatal]
  - Hospitalisation [Unknown]
  - Immunodeficiency [Unknown]
  - Therapy non-responder [Unknown]

NARRATIVE: CASE EVENT DATE: 20240401
